FAERS Safety Report 8287881-9 (Version None)
Quarter: 2012Q2

REPORT INFORMATION
  Report Type: 
  Country: None (occurrence: None)
  Receive Date: 20120416
  Receipt Date: 20120410
  Transmission Date: 20120825
  Serious: Yes (Death, Hospitalization, Other)
  Sender: FDA-Public Use
  Company Number: NL-GENZYME-CLOF-1002109

PATIENT
  Sex: Male
  Weight: 64 kg

DRUGS (3)
  1. FOLIUMZUUR [Concomitant]
     Indication: PROPHYLAXIS
     Dosage: 5 MG, UNK
     Route: 048
     Dates: start: 20120111, end: 20120118
  2. FLUDARA [Suspect]
     Indication: ACUTE MYELOID LEUKAEMIA
     Dosage: 30 MG/M2, UNK
     Route: 042
     Dates: start: 20110902, end: 20110904
  3. EVOLTRA [Suspect]
     Indication: ACUTE MYELOID LEUKAEMIA
     Dosage: 10 MG/M2, UNK
     Route: 042
     Dates: start: 20110712, end: 20110716

REACTIONS (3)
  - COLITIS [None]
  - ACUTE MYELOID LEUKAEMIA RECURRENT [None]
  - SEPSIS [None]
